FAERS Safety Report 5084985-9 (Version None)
Quarter: 2006Q3

REPORT INFORMATION
  Report Type: 
  Country: None (occurrence: None)
  Receive Date: 20060815
  Receipt Date: 20051021
  Transmission Date: 20061208
  Serious: Yes (Disabling)
  Sender: FDA-Public Use
  Company Number: 2006-73028

PATIENT
  Sex: Female

DRUGS (1)
  1. AMO(R) ENDOSOL (R) [Suspect]
     Indication: EYE IRRIGATION

REACTIONS (5)
  - FLUID RETENTION [None]
  - MYOPIA [None]
  - POST PROCEDURAL COMPLICATION [None]
  - PUPIL FIXED [None]
  - SCAR [None]
